FAERS Safety Report 23797259 (Version 1)
Quarter: 2024Q2

REPORT INFORMATION
  Report Type: Spontaneous
  Country: US (occurrence: US)
  Receive Date: 20240430
  Receipt Date: 20240430
  Transmission Date: 20240715
  Serious: Yes (Hospitalization, Other)
  Sender: FDA-Public Use
  Company Number: US-ENDO PHARMACEUTICALS INC-2024-001840

PATIENT
  Age: 16 Year
  Sex: Female

DRUGS (2)
  1. APLISOL [Suspect]
     Active Substance: TUBERCULIN PURIFIED PROTEIN DERIVATIVE
     Indication: Tuberculin test
     Dosage: UNK UNKNOWN, SINGLE
     Route: 023
     Dates: start: 1980
  2. APLISOL [Suspect]
     Active Substance: TUBERCULIN PURIFIED PROTEIN DERIVATIVE
     Dosage: UNK UNKNOWN, SINGLE
     Route: 023
     Dates: start: 1988

REACTIONS (3)
  - Uveitis [Recovered/Resolved]
  - Serous retinal detachment [Recovered/Resolved]
  - Skin reaction [Recovered/Resolved]

NARRATIVE: CASE EVENT DATE: 19800101
